FAERS Safety Report 18114078 (Version 1)
Quarter: 2020Q3

REPORT INFORMATION
  Report Type: Spontaneous
  Country: US (occurrence: US)
  Receive Date: 20200805
  Receipt Date: 20200805
  Transmission Date: 20201103
  Serious: No
  Sender: FDA-Public Use
  Company Number: NVSC2020US211967

PATIENT
  Age: 87 Year
  Sex: Male
  Weight: 74 kg

DRUGS (2)
  1. AFINITOR [Suspect]
     Active Substance: EVEROLIMUS
     Indication: LYMPHOMA
     Dosage: QD (SYSTEMIC) (FOR 3 WEEKS)
     Route: 065
     Dates: start: 202005, end: 202006
  2. SUBLINGUAL B12 [Suspect]
     Active Substance: CYANOCOBALAMIN
     Indication: MEDICAL DIET
     Dosage: 1 ML, QD (WITH LUNCH) (2FL. OZ., 1ML) NATURE^S BOUNTY SUBLINGUAL LIQUID))
     Route: 048
     Dates: start: 202006

REACTIONS (3)
  - Feeding disorder [Not Recovered/Not Resolved]
  - Swollen tongue [Unknown]
  - Weight decreased [Recovered/Resolved]

NARRATIVE: CASE EVENT DATE: 202006
